FAERS Safety Report 5271293-6 (Version None)
Quarter: 2007Q1

REPORT INFORMATION
  Report Type: 
  Country: None (occurrence: None)
  Receive Date: 20061214
  Receipt Date: 20060524
  Transmission Date: 20070707
  Serious: Yes (Hospitalization)
  Sender: FDA-Public Use
  Company Number: 2006069965

PATIENT
  Age: 46 Year
  Sex: Female
  Weight: 181.4388 kg

DRUGS (1)
  1. BEXTRA [Suspect]
     Indication: OSTEOARTHRITIS
     Dosage: 40 MG (20 MG,2 IN 1 D)
     Dates: start: 20040201

REACTIONS (1)
  - CARDIAC FAILURE CONGESTIVE [None]
